FAERS Safety Report 20177550 (Version 2)
Quarter: 2022Q1

REPORT INFORMATION
  Report Type: Spontaneous
  Country: US (occurrence: US)
  Receive Date: 20211213
  Receipt Date: 20220107
  Transmission Date: 20220423
  Serious: Yes (Other)
  Sender: FDA-Public Use
  Company Number: US-BAYER-2021A266309

PATIENT
  Age: 25 Year
  Sex: Male

DRUGS (1)
  1. KOGENATE FS [Suspect]
     Active Substance: ANTIHEMOPHILIC FACTOR, HUMAN RECOMBINANT
     Indication: Prophylaxis
     Dosage: 2233 IU 3XWEEK PROPH AND Q24 HRS TO 48 HRS FOR JOINT AND SOFT TISSUE BLEED
     Route: 042

REACTIONS (2)
  - COVID-19 [None]
  - Product dose omission issue [None]

NARRATIVE: CASE EVENT DATE: 20211121
